FAERS Safety Report 4801989-9 (Version None)
Quarter: 2005Q4

REPORT INFORMATION
  Report Type: 
  Country: None (occurrence: None)
  Receive Date: 20051012
  Receipt Date: 20050929
  Transmission Date: 20060501
  Serious: Yes (Other)
  Sender: FDA-Public Use
  Company Number: 2005136245

PATIENT
  Age: 53 Year
  Sex: Female
  Weight: 54.4316 kg

DRUGS (8)
  1. DETROL LA [Suspect]
     Indication: POLLAKIURIA
     Dosage: 4 MG (4 MG, 1 IN 1 D), ORAL
     Route: 048
     Dates: start: 20040505, end: 20040526
  2. LODIP (GEMFIBROZIL) [Concomitant]
  3. METFORMIN (METFORMIN) [Concomitant]
  4. CLUCOTROL (GLIPIZIDE) [Concomitant]
  5. GLUCOPHAGE [Concomitant]
  6. ZOCOR [Concomitant]
  7. ASPIRIN [Concomitant]
  8. CALCIUM (CALCIUM) [Concomitant]

REACTIONS (4)
  - BLADDER DISORDER [None]
  - BLOOD URINE PRESENT [None]
  - NERVE INJURY [None]
  - URINARY RETENTION [None]
